FAERS Safety Report 4788466-9 (Version None)
Quarter: 2005Q4

REPORT INFORMATION
  Report Type: 
  Country: None (occurrence: None)
  Receive Date: 20051005
  Receipt Date: 20051005
  Transmission Date: 20060501
  Serious: Yes (Hospitalization)
  Sender: FDA-Public Use
  Company Number: None

PATIENT
  Age: 36 Year
  Sex: Female

DRUGS (1)
  1. FIORICET [Suspect]
     Indication: SUICIDE ATTEMPT
     Dosage: 30 TABLETS PO X 1
     Route: 048
     Dates: start: 20041004

REACTIONS (5)
  - HEPATIC FAILURE [None]
  - LETHARGY [None]
  - NAUSEA [None]
  - OVERDOSE [None]
  - VOMITING [None]
